FAERS Safety Report 9204149 (Version 1)
Quarter: 2013Q1

REPORT INFORMATION
  Report Type: Spontaneous
  Country: US (occurrence: None)
  Receive Date: 20130329
  Receipt Date: 20130329
  Transmission Date: 20140127
  Serious: Yes (Other)
  Sender: FDA-Public Use
  Company Number: JPI-P-030871

PATIENT
  Age: 48 Year
  Sex: Female

DRUGS (1)
  1. XYREM [Suspect]
     Indication: INSOMNIA
     Dosage: 4.5 GM (2.25 GM, 2 IN 1 D), ORAL
     Route: 048
     Dates: start: 20121130

REACTIONS (3)
  - Back pain [None]
  - Exostosis [None]
  - Intervertebral disc protrusion [None]
